FAERS Safety Report 9451038 (Version 3)
Quarter: 2014Q2

REPORT INFORMATION
  Report Type: Spontaneous
  Country: US (occurrence: US)
  Receive Date: 20130809
  Receipt Date: 20140424
  Transmission Date: 20141212
  Serious: Yes (Death)
  Sender: FDA-Public Use
  Company Number: US-TMC-CABO-13002602

PATIENT
  Sex: Male

DRUGS (12)
  1. COMETRIQ [Suspect]
     Indication: THYROID CANCER
     Dosage: 140 MG, QD
     Route: 048
     Dates: start: 20130201, end: 20130226
  2. COMETRIQ [Suspect]
     Dosage: 20 MG, QD
     Route: 048
     Dates: start: 20130305, end: 2013
  3. COMETRIQ [Suspect]
     Dosage: 40 MG, QD
     Route: 048
     Dates: start: 20130321, end: 20130331
  4. COMETRIQ [Suspect]
     Dosage: 60 MG, QD
     Route: 048
     Dates: start: 20130401, end: 2013
  5. COMETRIQ [Suspect]
     Dosage: 60 MG, QOD
     Route: 048
     Dates: start: 2013
  6. COMETRIQ [Suspect]
     Dosage: 60 MG, QD
     Route: 048
     Dates: start: 20130918, end: 20140407
  7. HYDROCORTISONE [Concomitant]
  8. FLUDROCORTISONE [Concomitant]
  9. ZOLOFT [Concomitant]
  10. PRILOSEC [Concomitant]
  11. FENTANYL [Concomitant]
  12. SENTRAL [Concomitant]

REACTIONS (5)
  - Death [Fatal]
  - Genital rash [Not Recovered/Not Resolved]
  - Dizziness [Not Recovered/Not Resolved]
  - Diarrhoea [Unknown]
  - Dry skin [Unknown]
